FAERS Safety Report 6469911-X (Version None)
Quarter: 2009Q4

REPORT INFORMATION
  Report Type: 
  Country: None (occurrence: None)
  Receive Date: 20091203
  Receipt Date: 20071119
  Transmission Date: 20100525
  Serious: Yes (Hospitalization)
  Sender: FDA-Public Use
  Company Number: US-ELI_LILLY_AND_COMPANY-US200710006314

PATIENT
  Sex: Female

DRUGS (11)
  1. BYETTA [Suspect]
     Indication: DIABETES MELLITUS
     Dosage: 5 UG, 2/D
     Route: 058
     Dates: start: 20051001, end: 20051101
  2. BYETTA [Suspect]
     Dosage: 10 UG, 2/D
     Route: 058
     Dates: start: 20051101, end: 20070101
  3. BYETTA [Suspect]
     Dosage: 10 U, UNK
     Route: 058
     Dates: start: 20070101, end: 20070101
  4. HUMALOG MIX /01500801/ [Concomitant]
     Indication: DIABETES MELLITUS
     Dosage: 15 U, EACH MORNING
     Route: 058
  5. HUMALOG MIX /01500801/ [Concomitant]
     Dosage: 35 U, EACH EVENING
  6. ARTHROTEC [Concomitant]
     Dosage: 75 MG, 2/D
     Route: 065
  7. FLEXERIL [Concomitant]
     Dosage: 10 MG, AS NEEDED
     Route: 065
  8. ULTRAM [Concomitant]
     Dosage: 50 MG, AS NEEDED
  9. NEURONTIN [Concomitant]
     Dosage: 100 MG, 2/D
     Route: 065
  10. TOPAMAX [Concomitant]
     Dosage: 85 MG, 2/D
     Route: 065
  11. LEVOTHYROXINE SODIUM [Concomitant]
     Dosage: 50 UG, DAILY (1/D)
     Route: 065

REACTIONS (20)
  - ABDOMINAL PAIN LOWER [None]
  - ABDOMINAL PAIN UPPER [None]
  - ACCIDENTAL OVERDOSE [None]
  - ASTHENIA [None]
  - BLOOD GLUCOSE DECREASED [None]
  - BLOOD GLUCOSE INCREASED [None]
  - BLOOD PRESSURE DECREASED [None]
  - COLITIS [None]
  - DIARRHOEA [None]
  - ELECTROLYTE IMBALANCE [None]
  - FATIGUE [None]
  - INFLUENZA LIKE ILLNESS [None]
  - IRRITABILITY [None]
  - LIVER DISORDER [None]
  - LOSS OF CONSCIOUSNESS [None]
  - MEDICATION ERROR [None]
  - RENAL IMPAIRMENT [None]
  - RENAL PAIN [None]
  - URINARY TRACT INFECTION [None]
  - VOMITING [None]
